FAERS Safety Report 5911982-0 (Version None)
Quarter: 2008Q4

REPORT INFORMATION
  Report Type: 
  Country: None (occurrence: None)
  Receive Date: 20081008
  Receipt Date: 20081003
  Transmission Date: 20090506
  Serious: Yes (Life-Threatening, Hospitalization, Other)
  Sender: FDA-Public Use
  Company Number: PHHY2008BR23607

PATIENT
  Age: 48 Year
  Sex: Male

DRUGS (5)
  1. TEGRETOL [Suspect]
     Dosage: 50 TABLETS AT ONCE
     Route: 048
     Dates: start: 20081003
  2. CLONAZEPAM [Suspect]
     Dosage: 10 TABLETS AT ONCE
     Route: 048
     Dates: start: 20081003
  3. IMIPRAMINE [Suspect]
     Dosage: 40 TABLETS AT ONCE
     Route: 048
     Dates: start: 20030810
  4. HALOPERIDOL [Suspect]
     Dosage: 30 TABLETS AT ONCE
     Route: 048
     Dates: start: 20081003
  5. BIPERIDEN HYDROCHLORIDE TAB [Suspect]
     Dosage: 30 TABLETS AT ONCE
     Route: 048
     Dates: start: 20030810

REACTIONS (4)
  - COMA [None]
  - CONFUSIONAL STATE [None]
  - GASTRIC LAVAGE [None]
  - SUICIDE ATTEMPT [None]
